FAERS Safety Report 7902945-4 (Version None)
Quarter: 2011Q4

REPORT INFORMATION
  Report Type: 
  Country: None (occurrence: None)
  Receive Date: 20111109
  Receipt Date: 20111031
  Transmission Date: 20120403
  Serious: Yes (Other)
  Sender: FDA-Public Use
  Company Number: US-JNJFOC-20111101677

PATIENT
  Sex: Male
  Weight: 94 kg

DRUGS (18)
  1. LOPRESSOR [Concomitant]
     Route: 065
  2. NEURONTIN [Concomitant]
     Route: 065
  3. GLIPIZIDE [Concomitant]
     Route: 048
  4. HUMALOG [Concomitant]
     Route: 065
  5. TRICOR [Concomitant]
     Route: 048
  6. DOXORUBICIN HCL [Suspect]
     Route: 042
     Dates: end: 20110622
  7. CYMBALTA [Concomitant]
     Route: 065
  8. TARGRETIN [Concomitant]
     Route: 048
  9. ASPIRIN [Concomitant]
     Route: 065
  10. NORTRIPTYLINE HCL [Concomitant]
     Route: 065
  11. PREVACID [Concomitant]
     Route: 065
  12. HYDROCHLOROTHIAZIDE [Concomitant]
     Route: 048
  13. METFORMIN HCL [Concomitant]
     Route: 048
  14. LISINOPRIL [Concomitant]
     Route: 065
  15. DOXORUBICIN HCL [Suspect]
     Indication: MYCOSIS FUNGOIDES
     Route: 042
  16. NITROTAB [Concomitant]
     Route: 065
  17. SYNTHROID [Concomitant]
     Route: 048
  18. FLOVENT [Concomitant]
     Route: 065

REACTIONS (1)
  - MYOCARDIAL ISCHAEMIA [None]
